FAERS Safety Report 13905403 (Version 1)
Quarter: 2017Q3

REPORT INFORMATION
  Report Type: Spontaneous
  Country: US (occurrence: US)
  Receive Date: 20170825
  Receipt Date: 20170825
  Transmission Date: 20171127
  Serious: No
  Sender: FDA-Public Use
  Company Number: US-TEVA-731072ACC

PATIENT
  Age: 65 Year
  Sex: Female
  Weight: 55.39 kg

DRUGS (1)
  1. ALENDRONATE SODIUM. [Suspect]
     Active Substance: ALENDRONATE SODIUM
     Indication: OSTEOPOROSIS
     Dates: start: 201607

REACTIONS (1)
  - Oral disorder [Unknown]

NARRATIVE: CASE EVENT DATE: 201609
